FAERS Safety Report 10959535 (Version 2)
Quarter: 2015Q2

REPORT INFORMATION
  Report Type: Spontaneous
  Country: US (occurrence: US)
  Receive Date: 20150327
  Receipt Date: 20150524
  Transmission Date: 20150821
  Serious: No
  Sender: FDA-Public Use
  Company Number: US-JNJFOC-20140819439

PATIENT

DRUGS (2)
  1. DUROGESIC [Suspect]
     Active Substance: FENTANYL
     Indication: BREAKTHROUGH PAIN
     Route: 062
  2. NUROFEN [Suspect]
     Active Substance: IBUPROFEN
     Indication: BREAKTHROUGH PAIN
     Route: 065

REACTIONS (1)
  - Pain [Unknown]
